FAERS Safety Report 6328307-1 (Version None)
Quarter: 2009Q3

REPORT INFORMATION
  Report Type: 
  Country: None (occurrence: None)
  Receive Date: 20090825
  Receipt Date: 20090504
  Transmission Date: 20100115
  Serious: No
  Sender: FDA-Public Use
  Company Number: US-ABBOTT-09P-163-0571840-00

PATIENT
  Age: 58 Year
  Sex: Female

DRUGS (3)
  1. SYNTHROID [Suspect]
     Indication: HYPOTHYROIDISM
     Dates: start: 20080101, end: 20090101
  2. SYNTHROID [Suspect]
     Dosage: 1 TAB 3X/WEEK, 1/2 TAB 4X/WEEK
     Dates: start: 20090101
  3. SYNTHROID [Suspect]
     Dates: start: 20071029, end: 20080101

REACTIONS (2)
  - BLOOD THYROID STIMULATING HORMONE DECREASED [None]
  - DRUG DISPENSING ERROR [None]
